FAERS Safety Report 23266675 (Version 3)
Quarter: 2024Q1

REPORT INFORMATION
  Report Type: Spontaneous
  Country: US (occurrence: US)
  Receive Date: 20231206
  Receipt Date: 20240125
  Transmission Date: 20240410
  Serious: Yes (Hospitalization)
  Sender: FDA-Public Use
  Company Number: US-SAREPTA THERAPEUTICS INC.-SRP2023-004082

PATIENT
  Age: 18 Year
  Sex: Male
  Weight: 93.4 kg

DRUGS (29)
  1. VYONDYS 53 [Suspect]
     Active Substance: GOLODIRSEN
     Indication: Duchenne muscular dystrophy
     Dosage: 2800 MILLIGRAM, WEEKLY
     Route: 042
     Dates: start: 2020
  2. ACETAMINOPHEN [Concomitant]
     Active Substance: ACETAMINOPHEN
     Indication: Pain
     Dosage: 325 MILLIGRAM, Q4H, PRN
     Route: 048
     Dates: start: 20190919
  3. PROAIR HFA [Concomitant]
     Active Substance: ALBUTEROL SULFATE
     Indication: Wheezing
     Dosage: 2 PUFF, Q4H AS NEEDED
     Dates: start: 20221212
  4. PROAIR HFA [Concomitant]
     Active Substance: ALBUTEROL SULFATE
     Indication: Cough
  5. VENTOLIN [Concomitant]
     Active Substance: ALBUTEROL SULFATE
     Indication: Wheezing
     Dosage: 2 PUFF, Q4H AS NEEDED
     Dates: start: 20230116
  6. VENTOLIN [Concomitant]
     Active Substance: ALBUTEROL SULFATE
     Indication: Cough
  7. ALBUTEROL [Concomitant]
     Active Substance: ALBUTEROL
     Indication: Wheezing
     Dosage: 1 VIAL, Q4H AS NEEDED ( 0.083%)
     Dates: start: 20230811
  8. ALBUTEROL [Concomitant]
     Active Substance: ALBUTEROL
     Indication: Cough
  9. ELAVIL [Concomitant]
     Active Substance: AMITRIPTYLINE HYDROCHLORIDE
     Indication: Product used for unknown indication
     Dosage: 10 MILLIGRAM, HS
     Route: 048
     Dates: start: 20230823
  10. CHOLECALCIFEROL [Concomitant]
     Active Substance: CHOLECALCIFEROL
     Indication: Product used for unknown indication
     Dosage: 125 MICROGRAM, QD
     Dates: start: 20231209
  11. COREG [Concomitant]
     Active Substance: CARVEDILOL
     Indication: Dilated cardiomyopathy
     Dosage: 12.5 MILLIGRAM, BID
     Route: 048
     Dates: start: 20231209
  12. COREG [Concomitant]
     Active Substance: CARVEDILOL
     Indication: Ventricular extrasystoles
  13. CLOTRIMAZOLE [Concomitant]
     Active Substance: CLOTRIMAZOLE
     Indication: Product used for unknown indication
     Dosage: UNK UNK, BID ( 1% CREAM)
     Route: 061
     Dates: start: 20200628
  14. DEFLAZACORT [Concomitant]
     Active Substance: DEFLAZACORT
     Indication: Product used for unknown indication
     Dosage: 12 MILLIGRAM, QD
     Route: 048
     Dates: start: 20190819
  15. ENALAPRIL [Concomitant]
     Active Substance: ENALAPRIL
     Indication: Dilated cardiomyopathy
     Dosage: 10 MILLIGRAM, BID
     Route: 048
     Dates: start: 20230808
  16. ENALAPRIL [Concomitant]
     Active Substance: ENALAPRIL
     Dosage: 20 MILLIGRAM, BID ( 0.5 TABLET )
     Dates: start: 20231010
  17. ATROVENT [Concomitant]
     Active Substance: IPRATROPIUM BROMIDE
     Indication: Nasal congestion
     Dosage: 1 SPRAY 8 HOURS AS NEEDED
     Dates: start: 20210824
  18. ATROVENT [Concomitant]
     Active Substance: IPRATROPIUM BROMIDE
     Dosage: 2.5 MILLILITER, Q8H
     Dates: start: 20231130, end: 20231204
  19. LIDODERM [Concomitant]
     Active Substance: LIDOCAINE
     Indication: Product used for unknown indication
     Dosage: PLACE 4 PATCHES ONTO THE SKIN EVERY 24 HOURS., QD
     Route: 062
     Dates: start: 20230301
  20. MINERALS\VITAMINS [Concomitant]
     Active Substance: MINERALS\VITAMINS
     Indication: Product used for unknown indication
     Dosage: 1 TAB, QD
     Route: 048
     Dates: start: 20190611
  21. NYSTATIN [Concomitant]
     Active Substance: NYSTATIN
     Indication: Candida infection
     Dosage: 2 MILLILITER, QD
     Route: 048
     Dates: start: 20201003
  22. NYSTATIN [Concomitant]
     Active Substance: NYSTATIN
     Indication: Rash
     Dosage: UNK, TID ( OIINTMENT) APPLY ON FEET
     Route: 061
     Dates: start: 20231016
  23. NYSTATIN [Concomitant]
     Active Substance: NYSTATIN
     Indication: Rash
     Dosage: UNK, BID ( POWER) APPLY ON HAND
     Route: 061
     Dates: start: 20231016
  24. SPIRONOLACTONE [Concomitant]
     Active Substance: SPIRONOLACTONE
     Indication: Product used for unknown indication
     Dosage: 1 TABLET, QD
     Route: 048
     Dates: start: 20230811
  25. ZANAFLEX [Concomitant]
     Active Substance: TIZANIDINE HYDROCHLORIDE
     Indication: Muscle spasms
     Dosage: 2 MILLIGRAM, TID
     Route: 048
     Dates: start: 20231016
  26. DEFLAZACORT [Concomitant]
     Active Substance: DEFLAZACORT
     Indication: Product used for unknown indication
     Dosage: UNK
  27. IBUPROFEN [Concomitant]
     Active Substance: IBUPROFEN
     Indication: Pain
     Dosage: 600 MILLIGRAM, Q6H
     Route: 048
     Dates: start: 20190919
  28. IBUPROFEN [Concomitant]
     Active Substance: IBUPROFEN
     Indication: Pyrexia
  29. MOMETASONE FUROATE [Concomitant]
     Active Substance: MOMETASONE FUROATE
     Indication: Product used for unknown indication
     Dosage: 50 MICROGRAM, QD ( 2 SPARY PER DAY)
     Dates: start: 20210927

REACTIONS (3)
  - COVID-19 [Recovering/Resolving]
  - Pneumonia bacterial [Recovering/Resolving]
  - Pleural effusion [Recovering/Resolving]

NARRATIVE: CASE EVENT DATE: 20231128
